FAERS Safety Report 18068745 (Version 2)
Quarter: 2020Q3

REPORT INFORMATION
  Report Type: Report from Study
  Country: US (occurrence: US)
  Receive Date: 20200724
  Receipt Date: 20200810
  Transmission Date: 20201103
  Serious: Yes (Hospitalization)
  Sender: FDA-Public Use
  Company Number: US-ACTELION-A-US2019-187004

PATIENT
  Age: 26 Year
  Sex: Female
  Weight: 79.37 kg

DRUGS (6)
  1. COUMADIN [Concomitant]
     Active Substance: WARFARIN SODIUM
  2. UPTRAVI [Suspect]
     Active Substance: SELEXIPAG
     Dosage: 1400 MCG, BID
     Route: 048
  3. OPSUMIT [Suspect]
     Active Substance: MACITENTAN
     Indication: PULMONARY ARTERIAL HYPERTENSION
     Dosage: 10 MG, QD
     Route: 048
     Dates: start: 20181212
  4. ADEMPAS [Suspect]
     Active Substance: RIOCIGUAT
     Indication: PRODUCT USED FOR UNKNOWN INDICATION
     Route: 048
  5. UPTRAVI [Suspect]
     Active Substance: SELEXIPAG
     Indication: PULMONARY ARTERIAL HYPERTENSION
     Dosage: 1200 MCG, BID
     Route: 048
  6. UPTRAVI [Suspect]
     Active Substance: SELEXIPAG
     Dosage: 1600 MCG, BID
     Route: 048

REACTIONS (20)
  - Sleep study [Unknown]
  - Dizziness [Recovered/Resolved]
  - Catheterisation cardiac [Unknown]
  - Insomnia [Unknown]
  - Dyspnoea [Recovering/Resolving]
  - Joint swelling [Unknown]
  - Diarrhoea [Unknown]
  - Nausea [Unknown]
  - Chest discomfort [Unknown]
  - Unevaluable event [Unknown]
  - Ventricular extrasystoles [Unknown]
  - Headache [Unknown]
  - Rash pruritic [Unknown]
  - Flushing [Unknown]
  - Condition aggravated [Unknown]
  - Pain in jaw [Unknown]
  - Nasopharyngitis [Unknown]
  - Rash [Unknown]
  - Hypotension [Unknown]
  - Heart rate increased [Unknown]

NARRATIVE: CASE EVENT DATE: 201907
